FAERS Safety Report 9416564 (Version 4)
Quarter: 2014Q1

REPORT INFORMATION
  Report Type: Spontaneous
  Country: CA (occurrence: CA)
  Receive Date: 20130724
  Receipt Date: 20140214
  Transmission Date: 20141002
  Serious: Yes (Disabling, Other)
  Sender: FDA-Public Use
  Company Number: CA-ELI_LILLY_AND_COMPANY-CA201307004036

PATIENT
  Age: 55 Year
  Sex: Male
  Weight: 121 kg

DRUGS (7)
  1. HUMULIN NPH [Suspect]
     Indication: TYPE 2 DIABETES MELLITUS
     Dosage: 25 U, BID
     Route: 058
     Dates: start: 20130122, end: 20130702
  2. Q10 [Concomitant]
  3. D3 [Concomitant]
  4. NIACIN [Concomitant]
  5. B6 [Concomitant]
  6. B12                                /00056202/ [Concomitant]
  7. FOLIC ACID [Concomitant]

REACTIONS (10)
  - Hypersensitivity [Recovered/Resolved]
  - Neuralgia [Recovered/Resolved]
  - Abasia [Recovered/Resolved]
  - Arthralgia [Recovered/Resolved]
  - Joint swelling [Recovered/Resolved]
  - Pain in extremity [Recovering/Resolving]
  - Sleep disorder [Recovering/Resolving]
  - Blood glucose increased [Recovering/Resolving]
  - Myalgia [Unknown]
  - Blood pressure increased [Unknown]
